FAERS Safety Report 6626979-5 (Version None)
Quarter: 2010Q1

REPORT INFORMATION
  Report Type: 
  Country: None (occurrence: None)
  Receive Date: 20100311
  Receipt Date: 20100301
  Transmission Date: 20100710
  Serious: Yes (Hospitalization)
  Sender: FDA-Public Use
  Company Number: US-NOVOPROD-304976

PATIENT
  Sex: Female

DRUGS (2)
  1. VICTOZA [Suspect]
     Indication: DIABETES MELLITUS
     Dosage: 0.6 MG, QD X 7 DAYS
     Route: 058
     Dates: start: 20100201, end: 20100201
  2. VICTOZA [Suspect]
     Dosage: 1.2 MG, QD X 2 DAYS
     Route: 058
     Dates: start: 20100201, end: 20100201

REACTIONS (3)
  - DIARRHOEA [None]
  - NAUSEA [None]
  - PANCREATITIS ACUTE [None]
